FAERS Safety Report 8453763-2 (Version None)
Quarter: 2012Q2

REPORT INFORMATION
  Report Type: 
  Country: None (occurrence: None)
  Receive Date: 20120620
  Receipt Date: 20120612
  Transmission Date: 20120825
  Serious: Yes (Other)
  Sender: FDA-Public Use
  Company Number: US-FRI-1000029972

PATIENT
  Age: 52 Year
  Sex: Female

DRUGS (9)
  1. VIIBRYD [Suspect]
     Dosage: 40 MG
     Route: 048
     Dates: start: 20120101, end: 20120101
  2. VIIBRYD [Suspect]
     Dosage: 40 MG
     Route: 048
     Dates: start: 20120101, end: 20120101
  3. DIAZEPAM [Concomitant]
     Indication: INSOMNIA
     Dosage: AS NEEDED
  4. VIIBRYD [Suspect]
     Dosage: 20 MG
     Route: 048
     Dates: start: 20120101, end: 20120101
  5. VIIBRYD [Suspect]
     Dosage: 20 MG
     Route: 048
     Dates: start: 20120101, end: 20120101
  6. VIIBRYD [Suspect]
     Dosage: 20 MG
     Route: 048
     Dates: start: 20120101, end: 20120101
  7. VIIBRYD [Suspect]
     Dosage: 10 MG
     Route: 048
     Dates: start: 20120101, end: 20120101
  8. VIIBRYD [Suspect]
     Indication: DEPRESSION
     Dosage: 10 MG
     Route: 048
     Dates: start: 20120101, end: 20120101
  9. VIIBRYD [Suspect]
     Dosage: 5 MG
     Route: 048
     Dates: start: 20120101, end: 20120101

REACTIONS (13)
  - INSOMNIA [None]
  - DRUG INEFFECTIVE [None]
  - BLOOD PRESSURE DECREASED [None]
  - PARAESTHESIA [None]
  - HEADACHE [None]
  - PALPITATIONS [None]
  - LETHARGY [None]
  - FATIGUE [None]
  - SUICIDAL IDEATION [None]
  - DEPRESSION [None]
  - AGITATION [None]
  - MOOD SWINGS [None]
  - RESTLESSNESS [None]
